FAERS Safety Report 4700082-3 (Version None)
Quarter: 2005Q2

REPORT INFORMATION
  Report Type: 
  Country: None (occurrence: None)
  Receive Date: 20050126
  Receipt Date: 20050126
  Transmission Date: 20051028
  Serious: Yes (Other)
  Sender: FDA-Public Use
  Company Number: None

PATIENT
  Sex: Male

DRUGS (2)
  1. DILANTIN-30 [Suspect]
     Indication: MUSCULAR DYSTROPHY
     Dosage: PO   LIFETIME
     Route: 048
  2. DILANTIN-30 [Suspect]
     Indication: CONVULSION
     Dosage: PO   LIFETIME
     Route: 048

REACTIONS (3)
  - CONVULSION [None]
  - DRUG INEFFECTIVE [None]
  - THERAPEUTIC RESPONSE UNEXPECTED WITH DRUG SUBSTITUTION [None]
